FAERS Safety Report 7700031-X (Version None)
Quarter: 2011Q3

REPORT INFORMATION
  Report Type: 
  Country: None (occurrence: None)
  Receive Date: 20110822
  Receipt Date: 20110808
  Transmission Date: 20111222
  Serious: Yes (Hospitalization)
  Sender: FDA-Public Use
  Company Number: US-ELI_LILLY_AND_COMPANY-US201108002738

PATIENT
  Age: 56 Year
  Sex: Male

DRUGS (7)
  1. OXYCODONE HCL [Concomitant]
     Dosage: UNK, TID
  2. NOVOLOG [Concomitant]
     Dosage: UNK
  3. GLIPIZIDE [Concomitant]
     Dosage: UNK
  4. CYMBALTA [Suspect]
     Dosage: UNK, UNKNOWN
  5. LANTUS [Concomitant]
     Dosage: 15 IU, QD
     Route: 058
     Dates: start: 20040101
  6. DILAUDID [Concomitant]
     Dosage: UNK, TID
  7. HUMALOG [Concomitant]
     Dosage: UNK

REACTIONS (6)
  - HOSPITALISATION [None]
  - DIZZINESS [None]
  - MEMORY IMPAIRMENT [None]
  - BLOOD GLUCOSE FLUCTUATION [None]
  - NEUROPATHY PERIPHERAL [None]
  - INSOMNIA [None]
